FAERS Safety Report 6337364-8 (Version None)
Quarter: 2009Q3

REPORT INFORMATION
  Report Type: 
  Country: None (occurrence: None)
  Receive Date: 20090902
  Receipt Date: 20071130
  Transmission Date: 20100115
  Serious: Yes (Hospitalization, Other)
  Sender: FDA-Public Use
  Company Number: US-ASTRAZENECA-2006UW22654

PATIENT
  Age: 20869 Day
  Sex: Female
  Weight: 82.6 kg

DRUGS (15)
  1. SEROQUEL [Suspect]
     Dosage: 100 MG TO 400 MG
     Route: 048
     Dates: start: 20021022
  2. SEROQUEL [Suspect]
     Route: 048
  3. CLOZARIL [Concomitant]
  4. ALBUTEROL [Concomitant]
     Route: 048
     Dates: start: 20010312
  5. CLARITIN [Concomitant]
     Route: 048
     Dates: start: 20030312
  6. PREVACID [Concomitant]
     Route: 048
     Dates: start: 20010312
  7. LOPID [Concomitant]
     Route: 048
     Dates: start: 20021022
  8. BEXTRA [Concomitant]
     Route: 048
     Dates: start: 20021022
  9. PROTONICS [Concomitant]
     Route: 048
     Dates: start: 20021022
  10. DITROPAN [Concomitant]
     Route: 048
     Dates: start: 20021022
  11. PROVIGIL [Concomitant]
     Route: 048
     Dates: start: 20021022
  12. EFFEXOR [Concomitant]
     Route: 048
     Dates: start: 20021022
  13. LEXAPRO [Concomitant]
     Route: 048
     Dates: start: 20030919
  14. AMBIEN [Concomitant]
     Route: 048
     Dates: start: 20030919
  15. PERCOCET [Concomitant]
     Indication: PAIN
     Route: 048
     Dates: start: 20050930

REACTIONS (4)
  - DIABETES MELLITUS [None]
  - DIABETIC NEUROPATHY [None]
  - PANCREATIC DISORDER [None]
  - PANCREATITIS [None]
